FAERS Safety Report 8021934-5 (Version None)
Quarter: 2011Q4

REPORT INFORMATION
  Report Type: 
  Country: None (occurrence: None)
  Receive Date: 20111230
  Receipt Date: 20111219
  Transmission Date: 20120403
  Serious: Yes (Other)
  Sender: FDA-Public Use
  Company Number: 1000026363

PATIENT
  Age: 80 Year
  Sex: Female

DRUGS (6)
  1. LEVOTHROID [Suspect]
     Indication: THYROIDECTOMY
     Dosage: 88 MCG (88 MCG, 1 IN 1 D), ORAL
     Route: 048
  2. VITAMIN E (VITAMIN E) (VITAMIN E) [Concomitant]
  3. DILTIAZEM (DILTIAZEM HYDROCHLORIDE) (DILTIAZEM HYDROCHLORIDE) [Concomitant]
  4. GLUCOSAMINE (GLUCOSAMINE) (GLUCOSAMINE) [Concomitant]
  5. LEVOTHROID [Suspect]
     Indication: THYROIDECTOMY
     Dosage: 100 MCG (100 MCG, 1 IN 1 D), ORAL
     Route: 048
     Dates: start: 20090501
  6. CALCIUM (CALCIUM) (CALCIUM) [Concomitant]

REACTIONS (2)
  - HYPERTHYROIDISM [None]
  - ATRIAL FIBRILLATION [None]
